FAERS Safety Report 5817285-7 (Version None)
Quarter: 2008Q3

REPORT INFORMATION
  Report Type: 
  Country: None (occurrence: None)
  Receive Date: 20080722
  Receipt Date: 20080715
  Transmission Date: 20090109
  Serious: Yes (Hospitalization)
  Sender: FDA-Public Use
  Company Number: B0502342A

PATIENT
  Age: 69 Year
  Sex: Male
  Weight: 59.4 kg

DRUGS (2)
  1. LAMOTRIGINE [Suspect]
     Indication: EPILEPSY
     Route: 048
     Dates: start: 20071114
  2. CARBATROL [Suspect]
     Indication: DRUG USE FOR UNKNOWN INDICATION
     Dosage: 900MG PER DAY
     Route: 048

REACTIONS (4)
  - ANTICONVULSANT DRUG LEVEL ABOVE THERAPEUTIC [None]
  - DRUG INTERACTION [None]
  - DRUG TOXICITY [None]
  - LETHARGY [None]
